FAERS Safety Report 16599939 (Version 1)
Quarter: 2019Q3

REPORT INFORMATION
  Report Type: Other
  Country: CA (occurrence: CA)
  Receive Date: 20190719
  Receipt Date: 20190719
  Transmission Date: 20191004
  Serious: Yes (Hospitalization, Other)
  Sender: FDA-Public Use
  Company Number: CA-PFIZER INC-2019306532

PATIENT
  Age: 56 Year
  Sex: Female

DRUGS (10)
  1. SERTRALINE HCL [Suspect]
     Active Substance: SERTRALINE HYDROCHLORIDE
     Dosage: 150 MG, 1X/DAY
     Route: 065
  2. CLONAZEPAM. [Suspect]
     Active Substance: CLONAZEPAM
     Dosage: 2 MG, 1X/DAY
     Route: 065
  3. DIAZEPAM. [Suspect]
     Active Substance: DIAZEPAM
     Dosage: 10 MG, 1X/DAY
     Route: 065
  4. QUETIAPINE FUMARATE. [Suspect]
     Active Substance: QUETIAPINE FUMARATE
     Dosage: 800 MG, 1X/DAY
     Route: 048
  5. CLOZAPINE. [Concomitant]
     Active Substance: CLOZAPINE
     Dosage: UNK
     Route: 065
  6. QUETIAPINE FUMARATE. [Suspect]
     Active Substance: QUETIAPINE FUMARATE
     Dosage: 750 MG, 1X/DAY
     Route: 048
  7. PHENYTOIN. [Suspect]
     Active Substance: PHENYTOIN
     Dosage: 300 MG, 1X/DAY
     Route: 065
  8. CLONAZEPAM. [Suspect]
     Active Substance: CLONAZEPAM
     Dosage: 0.5 MG, 1X/DAY
     Route: 065
  9. SERTRALINE HCL [Suspect]
     Active Substance: SERTRALINE HYDROCHLORIDE
     Dosage: 200 MG, UNK
     Route: 065
  10. QUETIAPINE FUMARATE. [Suspect]
     Active Substance: QUETIAPINE FUMARATE
     Dosage: 900 MG, 1X/DAY
     Route: 048

REACTIONS (18)
  - Pain in jaw [Recovered/Resolved]
  - Temporomandibular joint syndrome [Recovered/Resolved]
  - Dysarthria [Recovered/Resolved]
  - Incoherent [Recovered/Resolved]
  - Somnambulism [Recovered/Resolved]
  - Agranulocytosis [Recovered/Resolved]
  - Oromandibular dystonia [Recovered/Resolved]
  - Hallucination [Recovered/Resolved]
  - Paraesthesia [Recovered/Resolved]
  - Akathisia [Recovered/Resolved]
  - Speech disorder [Recovered/Resolved]
  - Trismus [Recovered/Resolved]
  - Tardive dyskinesia [Recovered/Resolved]
  - Arthralgia [Recovered/Resolved]
  - Hypotension [Recovered/Resolved]
  - Muscle spasms [Recovered/Resolved]
  - Dystonia [Recovered/Resolved]
  - Pain [Recovered/Resolved]
